FAERS Safety Report 10728692 (Version 1)
Quarter: 2015Q1

REPORT INFORMATION
  Report Type: Spontaneous
  Country: US (occurrence: None)
  Receive Date: 20150120
  Receipt Date: 20150120
  Transmission Date: 20150721
  Serious: Yes (Life-Threatening, Hospitalization, Other)
  Sender: FDA-Public Use
  Company Number: None

PATIENT
  Age: 66 Year
  Sex: Female
  Weight: 109 kg

DRUGS (8)
  1. DIPHENHYDRAMINE [Concomitant]
     Active Substance: DIPHENHYDRAMINE
  2. LISINOPRIL AND HYDROCHLOROTHIAZIDE [Concomitant]
     Active Substance: HYDROCHLOROTHIAZIDE\LISINOPRIL
  3. FAMOTIDINE. [Concomitant]
     Active Substance: FAMOTIDINE
  4. PIPERACILLIN/TAZOBACTAM [Concomitant]
     Active Substance: PIPERACILLIN SODIUM\TAZOBACTAM SODIUM
  5. ONDANSETRON [Concomitant]
     Active Substance: ONDANSETRON
  6. ENOXAPARIN [Concomitant]
     Active Substance: ENOXAPARIN
  7. PACLITAXEL. [Suspect]
     Active Substance: PACLITAXEL
     Indication: ENDOMETRIAL CANCER
     Dosage: 290 (135 MG/M2) ONCE INTRAVENOUS
     Route: 042
     Dates: start: 20141209, end: 20141209
  8. DEXAMETHASONE. [Concomitant]
     Active Substance: DEXAMETHASONE

REACTIONS (4)
  - Metastatic uterine cancer [None]
  - Eye movement disorder [None]
  - Blood pressure increased [None]
  - Cardio-respiratory arrest [None]

NARRATIVE: CASE EVENT DATE: 20141209
